FAERS Safety Report 5873145-7 (Version None)
Quarter: 2008Q3

REPORT INFORMATION
  Report Type: 
  Country: None (occurrence: None)
  Receive Date: 20080908
  Receipt Date: 20080829
  Transmission Date: 20090109
  Serious: Yes (Hospitalization)
  Sender: FDA-Public Use
  Company Number: SE-JNJFOC-20080900038

PATIENT
  Sex: Female

DRUGS (3)
  1. RISPERDAL [Suspect]
     Indication: PSYCHOTIC DISORDER
     Route: 048
  2. TRUSOPT [Concomitant]
     Route: 065
  3. XALATAN [Concomitant]
     Route: 065

REACTIONS (1)
  - DEEP VEIN THROMBOSIS [None]
